FAERS Safety Report 11886613 (Version 2)
Quarter: 2016Q1

REPORT INFORMATION
  Report Type: Spontaneous
  Country: US (occurrence: US)
  Receive Date: 20160104
  Receipt Date: 20160225
  Transmission Date: 20160526
  Serious: No
  Sender: FDA-Public Use
  Company Number: US-PFIZER INC-2015475904

PATIENT
  Age: 74 Year
  Sex: Female
  Weight: 58.97 kg

DRUGS (3)
  1. CELECOXIB. [Suspect]
     Active Substance: CELECOXIB
     Indication: ARTHRITIS
     Dosage: 200MG, ONE A DAY
     Route: 048
     Dates: start: 20150522, end: 20150914
  2. CELECOXIB. [Suspect]
     Active Substance: CELECOXIB
     Indication: BACK PAIN
  3. LIDOCAINE. [Concomitant]
     Active Substance: LIDOCAINE

REACTIONS (3)
  - Herpes zoster [Unknown]
  - Headache [Recovered/Resolved]
  - Nausea [Recovered/Resolved]
